FAERS Safety Report 4943385-X (Version None)
Quarter: 2006Q1

REPORT INFORMATION
  Report Type: 
  Country: None (occurrence: None)
  Receive Date: 20060314
  Receipt Date: 20060305
  Transmission Date: 20060701
  Serious: Yes (Death, Other)
  Sender: FDA-Public Use
  Company Number: GB-JNJFOC-20060301934

PATIENT
  Age: 76 Year
  Sex: Female

DRUGS (3)
  1. INFLIXIMAB [Suspect]
     Indication: ERYTHRODERMIC PSORIASIS
     Dosage: 3 INFUSIONS
     Route: 042
  2. ACITRETIN [Concomitant]
  3. HYDROXYUREA [Concomitant]

REACTIONS (1)
  - T-CELL LYMPHOMA [None]
